FAERS Safety Report 13162189 (Version 1)
Quarter: 2017Q1

REPORT INFORMATION
  Report Type: Spontaneous
  Country: US (occurrence: US)
  Receive Date: 20170130
  Receipt Date: 20170130
  Transmission Date: 20170428
  Serious: No
  Sender: FDA-Public Use
  Company Number: US-PFIZER INC-2017036935

PATIENT
  Sex: Female

DRUGS (1)
  1. XELJANZ XR [Suspect]
     Active Substance: TOFACITINIB CITRATE
     Dosage: UNK
     Dates: start: 20161101

REACTIONS (14)
  - Musculoskeletal stiffness [Unknown]
  - Activities of daily living impaired [Unknown]
  - Back pain [Unknown]
  - Arthralgia [Unknown]
  - Generalised anxiety disorder [Unknown]
  - Swelling [Unknown]
  - Pain in extremity [Unknown]
  - Sleep disorder [Unknown]
  - Muscle disorder [Unknown]
  - Irritable bowel syndrome [Unknown]
  - Fatigue [Unknown]
  - Asthenia [Unknown]
  - Hypoaesthesia [Unknown]
  - Paraesthesia [Unknown]
